FAERS Safety Report 8016129-5 (Version None)
Quarter: 2011Q4

REPORT INFORMATION
  Report Type: 
  Country: None (occurrence: None)
  Receive Date: 20111228
  Receipt Date: 20111228
  Transmission Date: 20120403
  Serious: Yes (Other)
  Sender: FDA-Public Use
  Company Number: None

PATIENT
  Sex: Male
  Weight: 72.5755 kg

DRUGS (1)
  1. MICARDIS HCT [Suspect]
     Indication: HYPERTENSION
     Dosage: 80/25MG 1 DAY
     Dates: start: 20091201, end: 20111201

REACTIONS (3)
  - SYSTEMIC LUPUS ERYTHEMATOSUS [None]
  - INSOMNIA [None]
  - FATIGUE [None]
